FAERS Safety Report 7311587-3 (Version None)
Quarter: 2011Q1

REPORT INFORMATION
  Report Type: 
  Country: None (occurrence: None)
  Receive Date: 20110224
  Receipt Date: 20110215
  Transmission Date: 20110831
  Serious: Yes (Death, Hospitalization)
  Sender: FDA-Public Use
  Company Number: CO-JNJFOC-20110205986

PATIENT
  Age: 6 Month
  Sex: Male

DRUGS (2)
  1. AMOXICILLIN [Suspect]
     Indication: OTITIS MEDIA ACUTE
     Dosage: X 5 DAYS
  2. IBUPROFEN [Suspect]
     Indication: OTITIS MEDIA ACUTE
     Dosage: X 5 DAYS

REACTIONS (4)
  - NECROTISING FASCIITIS [None]
  - MULTI-ORGAN FAILURE [None]
  - DIARRHOEA HAEMORRHAGIC [None]
  - SEPTIC SHOCK [None]
